FAERS Safety Report 9157787 (Version 1)
Quarter: 2013Q1

REPORT INFORMATION
  Report Type: Spontaneous
  Country: US (occurrence: None)
  Receive Date: 20130311
  Receipt Date: 20130311
  Transmission Date: 20140127
  Serious: Yes (Disabling)
  Sender: FDA-Public Use
  Company Number: None

PATIENT
  Age: 63 Day
  Sex: Female
  Weight: 99.79 kg

DRUGS (2)
  1. LYRICA [Suspect]
     Indication: FIBROMYALGIA
     Dates: start: 20080501, end: 20080701
  2. SAVELLA [Suspect]
     Indication: FIBROMYALGIA
     Dates: start: 20080702, end: 20081001

REACTIONS (4)
  - Psychotic disorder [None]
  - Incision site complication [None]
  - Skin discolouration [None]
  - Skin exfoliation [None]
